APPROVED DRUG PRODUCT: SULFAMETHOXAZOLE AND TRIMETHOPRIM
Active Ingredient: SULFAMETHOXAZOLE; TRIMETHOPRIM
Strength: 400MG;80MG
Dosage Form/Route: TABLET;ORAL
Application: A070890 | Product #002
Applicant: AIPING PHARMACEUTICAL INC
Approved: Nov 13, 1986 | RLD: No | RS: No | Type: DISCN